FAERS Safety Report 8600947-6 (Version None)
Quarter: 2012Q3

REPORT INFORMATION
  Report Type: 
  Country: None (occurrence: None)
  Receive Date: 20120803
  Receipt Date: 20120723
  Transmission Date: 20120928
  Serious: Yes (Life-Threatening)
  Sender: FDA-Public Use
  Company Number: 1360070

PATIENT
  Age: 73 Year
  Sex: Male
  Weight: 94 kg

DRUGS (3)
  1. XELODA [Suspect]
     Indication: BRAIN NEOPLASM MALIGNANT
     Dates: start: 20120424, end: 20120516
  2. EPIRUBICIN HYDROCHLORIDE [Suspect]
     Indication: BRAIN NEOPLASM MALIGNANT
     Dosage: 50 MG/M2 MILLIGRAM(S)/SQ. METER
     Dates: start: 20120424, end: 20120516
  3. OXALIPLATIN [Suspect]
     Indication: BRAIN NEOPLASM MALIGNANT
     Dosage: 130 MG/M2 MILLIGRAM(S)/SQ. METER INTRAVENOUS (NOT OTHERWISE SPECIFIED)
     Route: 042
     Dates: start: 20120424, end: 20120516

REACTIONS (4)
  - URINARY HESITATION [None]
  - TACHYCARDIA [None]
  - TOXICITY TO VARIOUS AGENTS [None]
  - NEUTROPENIC SEPSIS [None]
